FAERS Safety Report 11697331 (Version 2)
Quarter: 2015Q4

REPORT INFORMATION
  Report Type: Report from Study
  Country: ES (occurrence: ES)
  Receive Date: 20151104
  Receipt Date: 20151118
  Transmission Date: 20160304
  Serious: Yes (Death, Hospitalization)
  Sender: FDA-Public Use
  Company Number: ES-PFIZER INC-2015366303

PATIENT
  Age: 80 Year
  Sex: Male

DRUGS (7)
  1. SIMVASTATIN. [Suspect]
     Active Substance: SIMVASTATIN
     Indication: HYPERLIPIDAEMIA
     Dosage: 10 MG, DAILY
     Route: 048
     Dates: start: 201004, end: 20150621
  2. OMEPRAZOLE. [Suspect]
     Active Substance: OMEPRAZOLE
     Dosage: UNK
     Route: 048
     Dates: start: 201004, end: 20150621
  3. METFORMIN HCL [Concomitant]
     Active Substance: METFORMIN HYDROCHLORIDE
     Dosage: UNK
     Dates: start: 201004, end: 20150621
  4. TRANGOREX [Suspect]
     Active Substance: AMIODARONE HYDROCHLORIDE
     Indication: ATRIAL FIBRILLATION
     Dosage: 200 MG (5 EVERY ONE WEEK)
     Route: 048
     Dates: start: 20100819, end: 20150621
  5. ALLOPURINOL. [Suspect]
     Active Substance: ALLOPURINOL
     Indication: GOUT
     Dosage: 300 MG, DAILY
     Route: 048
     Dates: start: 201004, end: 20150621
  6. ENALAPRIL [Concomitant]
     Active Substance: ENALAPRIL
     Dosage: UNK
  7. SINTROM [Suspect]
     Active Substance: ACENOCOUMAROL
     Indication: ATRIAL FIBRILLATION
     Dosage: UNK, DAILY
     Route: 048
     Dates: start: 20100819, end: 20150621

REACTIONS (1)
  - Cerebral haemorrhage [Fatal]

NARRATIVE: CASE EVENT DATE: 20150621
